FAERS Safety Report 6359939-2 (Version None)
Quarter: 2009Q3

REPORT INFORMATION
  Report Type: 
  Country: None (occurrence: None)
  Receive Date: 20090917
  Receipt Date: 20090908
  Transmission Date: 20100115
  Serious: Yes (Life-Threatening, Hospitalization)
  Sender: FDA-Public Use
  Company Number: JP-PFIZER INC-2009221820

PATIENT
  Age: 59 Year

DRUGS (9)
  1. SUNITINIB MALATE [Suspect]
     Indication: RENAL CELL CARCINOMA
     Dosage: 25 MG, DAILY, TDD 25 MG
     Route: 048
     Dates: start: 20090318, end: 20090415
  2. LOXOPROFEN SODIUM [Concomitant]
     Dosage: 180 MG, THREE TIMES DAILY
     Route: 048
  3. BISOLVON [Concomitant]
     Dosage: UNK
     Route: 048
  4. MUCOSTA [Concomitant]
     Dosage: UNK
     Route: 048
  5. NOVAMIN [Concomitant]
     Dosage: UNK
     Route: 048
  6. MAGNESIUM OXIDE [Concomitant]
     Dosage: UNK
     Route: 048
  7. OXYCONTIN [Concomitant]
     Dosage: 2 TABLETS, TWICE DAILY
     Route: 048
  8. CODEINE PHOSPHATE [Concomitant]
     Dosage: 120 MG, FOUR TIMES DAILY
     Route: 048
  9. OPIOIDS [Concomitant]

REACTIONS (1)
  - INTERSTITIAL LUNG DISEASE [None]
